FAERS Safety Report 10264675 (Version 1)
Quarter: 2014Q2

REPORT INFORMATION
  Report Type: Spontaneous
  Country: BR (occurrence: BR)
  Receive Date: 20140627
  Receipt Date: 20140627
  Transmission Date: 20141212
  Serious: Yes (Other)
  Sender: FDA-Public Use
  Company Number: BR-DSJP-DSU-2014-112324

PATIENT
  Sex: 0

DRUGS (9)
  1. OLMETEC 20 MG [Suspect]
     Dosage: 20 MG, QD
     Route: 048
     Dates: start: 2009
  2. OLMETEC 20 MG [Suspect]
     Dosage: 10 MG, QD
     Route: 048
     Dates: start: 2009
  3. LIPITOR [Suspect]
     Indication: BLOOD CHOLESTEROL
     Dosage: 20 MG, QD
     Route: 048
  4. ASPIRINA [Concomitant]
     Dosage: 1 TABLET, QD
  5. BRILINTA [Concomitant]
     Dosage: 2 TABLETS, QD
  6. GLIMEPIRIDA [Concomitant]
     Indication: BLOOD GLUCOSE
     Dosage: 4 MG, QD
  7. GLIFAGE [Concomitant]
     Indication: BLOOD GLUCOSE
     Dosage: 3 TABLETS, QD
  8. JANUVIA [Concomitant]
     Indication: BLOOD GLUCOSE
     Dosage: 1 TABLET, QD
     Dates: start: 201403
  9. CEBRALAT [Concomitant]
     Dosage: 2 TABLETS, QD

REACTIONS (3)
  - Cerebrovascular accident [Unknown]
  - Foot operation [Unknown]
  - Drug administration error [Not Recovered/Not Resolved]
